FAERS Safety Report 8164779-8 (Version None)
Quarter: 2012Q1

REPORT INFORMATION
  Report Type: 
  Country: None (occurrence: None)
  Receive Date: 20120227
  Receipt Date: 20120214
  Transmission Date: 20120608
  Serious: No
  Sender: FDA-Public Use
  Company Number: US-BIOGENIDEC-2012BI005984

PATIENT
  Age: 45 Year
  Sex: Female

DRUGS (1)
  1. TYSABRI [Suspect]
     Indication: MULTIPLE SCLEROSIS
     Route: 042
     Dates: start: 20050225

REACTIONS (5)
  - BALANCE DISORDER [None]
  - RHINORRHOEA [None]
  - VOMITING [None]
  - MUSCLE TIGHTNESS [None]
  - NASAL CONGESTION [None]
